FAERS Safety Report 11727116 (Version 4)
Quarter: 2016Q1

REPORT INFORMATION
  Report Type: Spontaneous
  Country: DE (occurrence: DE)
  Receive Date: 20151112
  Receipt Date: 20160225
  Transmission Date: 20160525
  Serious: Yes (Other)
  Sender: FDA-Public Use
  Company Number: DE-NOVOPROD-469650

PATIENT
  Age: 22 Year
  Sex: Female
  Weight: 52 kg

DRUGS (3)
  1. L-THYROXIN [Concomitant]
     Active Substance: LEVOTHYROXINE SODIUM
     Dosage: 1-0-0
     Route: 048
     Dates: start: 201108
  2. NORDITROPIN [Suspect]
     Active Substance: SOMATROPIN
     Indication: GROWTH HORMONE DEFICIENCY
     Dosage: 4 MG, QD (0-0-1)
     Route: 058
     Dates: start: 200801, end: 201511
  3. MAXIM                              /01257001/ [Suspect]
     Active Substance: DIENOGEST\ETHINYL ESTRADIOL
     Indication: PRODUCT USED FOR UNKNOWN INDICATION
     Dosage: 0-0-1
     Route: 048
     Dates: start: 200912, end: 201512

REACTIONS (2)
  - Focal nodular hyperplasia [Unknown]
  - Spinal disorder [Unknown]

NARRATIVE: CASE EVENT DATE: 20151013
